FAERS Safety Report 12447749 (Version 1)
Quarter: 2016Q2

REPORT INFORMATION
  Report Type: Spontaneous
  Country: US (occurrence: None)
  Receive Date: 20160607
  Receipt Date: 20160607
  Transmission Date: 20160815
  Serious: Yes (Hospitalization)
  Sender: FDA-Public Use
  Company Number: None

PATIENT
  Age: 63 Year
  Sex: Male

DRUGS (6)
  1. GLUCOSAMINE [Concomitant]
     Active Substance: GLUCOSAMINE
  2. GLATOPA [Suspect]
     Active Substance: GLATIRAMER ACETATE
     Indication: MULTIPLE SCLEROSIS
     Route: 058
     Dates: start: 20150630
  3. LOSARTAN. [Concomitant]
     Active Substance: LOSARTAN
  4. BACLOFEN. [Concomitant]
     Active Substance: BACLOFEN
  5. AMANTADINE [Concomitant]
     Active Substance: AMANTADINE
  6. SIMVASTATIN. [Concomitant]
     Active Substance: SIMVASTATIN

REACTIONS (1)
  - Lymphoma [None]

NARRATIVE: CASE EVENT DATE: 20160529
